FAERS Safety Report 5306398-4 (Version None)
Quarter: 2007Q2

REPORT INFORMATION
  Report Type: 
  Country: None (occurrence: None)
  Receive Date: 20070424
  Receipt Date: 20070418
  Transmission Date: 20071010
  Serious: Yes (Other)
  Sender: FDA-Public Use
  Company Number: PHNU2007DE01385

PATIENT
  Age: 66 Year
  Sex: Male
  Weight: 87 kg

DRUGS (2)
  1. DICLOFENAC SODIUM [Suspect]
     Indication: OSTEOARTHRITIS
     Dosage: 100 MG, QD
     Route: 048
     Dates: start: 20070314, end: 20070317
  2. PLAVIX [Concomitant]
     Indication: PERIPHERAL ARTERIAL OCCLUSIVE DISEASE
     Dosage: 75 MG DAILY
     Route: 048

REACTIONS (1)
  - DIPLOPIA [None]
